FAERS Safety Report 21134637 (Version 1)
Quarter: 2022Q3

REPORT INFORMATION
  Report Type: Spontaneous
  Country: BR (occurrence: BR)
  Receive Date: 20220727
  Receipt Date: 20220727
  Transmission Date: 20221026
  Serious: Yes (Other)
  Sender: FDA-Public Use
  Company Number: BR-ABBVIE-22K-020-4483100-00

PATIENT
  Sex: Female

DRUGS (1)
  1. ANDROGEL [Suspect]
     Active Substance: TESTOSTERONE
     Indication: Hormone replacement therapy
     Dosage: 1 SACHET, 3 TIMES PER WEEK (3 IN 1)
     Route: 062

REACTIONS (2)
  - Hysterosalpingo-oophorectomy [Unknown]
  - Product prescribing issue [Unknown]
